FAERS Safety Report 21765973 (Version 2)
Quarter: 2024Q3

REPORT INFORMATION
  Report Type: Report from Study
  Country: CA (occurrence: CA)
  Receive Date: 20221222
  Receipt Date: 20240724
  Transmission Date: 20241016
  Serious: Yes (Other)
  Sender: VIIV
  Company Number: CA-VIIV HEALTHCARE LIMITED-CA2022188709

PATIENT

DRUGS (4)
  1. CABOTEGRAVIR\RILPIVIRINE [Suspect]
     Active Substance: CABOTEGRAVIR\RILPIVIRINE
     Indication: HIV infection
     Dosage: UNK UNK, Q2M (CABOTEGRAVIR 600MG/3ML RILPIVIRINE 900MG/3ML)
     Route: 030
     Dates: start: 20220910
  2. CABOTEGRAVIR\RILPIVIRINE [Suspect]
     Active Substance: CABOTEGRAVIR\RILPIVIRINE
  3. CABOTEGRAVIR\RILPIVIRINE [Suspect]
     Active Substance: CABOTEGRAVIR\RILPIVIRINE
  4. CABOTEGRAVIR\RILPIVIRINE [Suspect]
     Active Substance: CABOTEGRAVIR\RILPIVIRINE
     Indication: HIV infection
     Dosage: UNK, Q2M, CABOTEGRAVIR 600MG/3ML RILPIVIRINE 900MG/3ML
     Route: 030

REACTIONS (6)
  - Syphilis [Unknown]
  - Bowel movement irregularity [Not Recovered/Not Resolved]
  - Polyp [Unknown]
  - Faeces discoloured [Not Recovered/Not Resolved]
  - Faeces soft [Not Recovered/Not Resolved]
  - Rectal prolapse [Unknown]

NARRATIVE: CASE EVENT DATE: 20231201
